FAERS Safety Report 4970318-2 (Version None)
Quarter: 2006Q2

REPORT INFORMATION
  Report Type: 
  Country: None (occurrence: None)
  Receive Date: 20060331
  Receipt Date: 20051222
  Transmission Date: 20061013
  Serious: Yes (Life-Threatening, Hospitalization)
  Sender: FDA-Public Use
  Company Number: 2005BH003795

PATIENT
  Age: 78 Year
  Sex: Male

DRUGS (12)
  1. IVEEGAM [Suspect]
     Indication: DRUG USE FOR UNKNOWN INDICATION
     Dosage: 8 + 5GM; AS NEEDED; IV
     Route: 042
     Dates: start: 20050812, end: 20050812
  2. IVEEGAM [Suspect]
     Indication: DRUG USE FOR UNKNOWN INDICATION
     Dosage: 8 + 5GM; AS NEEDED; IV
     Route: 042
     Dates: start: 20050812, end: 20050812
  3. IVEEGAM [Suspect]
  4. CORTANCYL [Concomitant]
  5. BACTRIM [Concomitant]
  6. PENTAMIDINE ISETHIONATE [Concomitant]
  7. LEVOTHYROX [Concomitant]
  8. ROVAMYCINE [Concomitant]
  9. FORMOTEROL [Concomitant]
  10. ENDOXAN [Concomitant]
  11. MESNA [Concomitant]
  12. IMUREL [Concomitant]

REACTIONS (2)
  - BLOOD PRESSURE SYSTOLIC INCREASED [None]
  - BRONCHOSPASM [None]
